FAERS Safety Report 8452138-X (Version None)
Quarter: 2012Q2

REPORT INFORMATION
  Report Type: 
  Country: None (occurrence: None)
  Receive Date: 20120620
  Receipt Date: 20120501
  Transmission Date: 20120825
  Serious: No
  Sender: FDA-Public Use
  Company Number: US-VERTEX PHARMACEUTICALS INC.-AE-2012-004666

PATIENT
  Sex: Female
  Weight: 71.732 kg

DRUGS (6)
  1. PEGASYS [Concomitant]
     Indication: HEPATITIS C
     Route: 058
     Dates: start: 20120319
  2. NARCO [Concomitant]
     Indication: PAIN
     Route: 048
  3. INCIVEK [Suspect]
     Indication: HEPATITIS C
     Route: 048
     Dates: start: 20120319
  4. RIBAVIRIN [Concomitant]
     Indication: HEPATITIS C
     Route: 048
     Dates: start: 20120319
  5. ACIPHEX [Concomitant]
     Indication: GASTROOESOPHAGEAL REFLUX DISEASE
     Route: 048
  6. TENORMIN [Concomitant]
     Indication: HYPERTENSION
     Route: 048

REACTIONS (5)
  - ANAEMIA [None]
  - ANORECTAL DISCOMFORT [None]
  - NAUSEA [None]
  - SOMNOLENCE [None]
  - DYSPEPSIA [None]
